FAERS Safety Report 10152044 (Version 1)
Quarter: 2014Q2

REPORT INFORMATION
  Report Type: Spontaneous
  Country: US (occurrence: US)
  Receive Date: 20140505
  Receipt Date: 20140505
  Transmission Date: 20141212
  Serious: No
  Sender: FDA-Public Use
  Company Number: US-BRISTOL-MYERS SQUIBB COMPANY-20297859

PATIENT
  Age: 70 Year
  Sex: Female

DRUGS (7)
  1. FARXIGA [Suspect]
     Indication: DIABETES MELLITUS
     Route: 048
     Dates: start: 20140219
  2. METFORMIN [Concomitant]
  3. LANTUS [Concomitant]
  4. METOPROLOL [Concomitant]
  5. AMLODIPINE [Concomitant]
  6. LOSARTAN [Concomitant]
  7. NEXIUM [Concomitant]

REACTIONS (4)
  - Somnolence [Not Recovered/Not Resolved]
  - Rhinorrhoea [Not Recovered/Not Resolved]
  - Asthenia [Not Recovered/Not Resolved]
  - Headache [Not Recovered/Not Resolved]
